FAERS Safety Report 13937758 (Version 5)
Quarter: 2017Q4

REPORT INFORMATION
  Report Type: Spontaneous
  Country: CA (occurrence: CA)
  Receive Date: 20170905
  Receipt Date: 20171116
  Transmission Date: 20180320
  Serious: Yes (Hospitalization, Other)
  Sender: FDA-Public Use
  Company Number: CA-HIKMA PHARMACEUTICALS CO. LTD-2017CA011383

PATIENT

DRUGS (27)
  1. BOOST [Concomitant]
     Active Substance: DIETARY SUPPLEMENT
  2. APO-PREDNISONE [Concomitant]
     Active Substance: PREDNISONE
  3. STATEX                             /00036302/ [Concomitant]
     Active Substance: MORPHINE SULFATE
  4. APO HYDROMORPHONE [Concomitant]
     Active Substance: HYDROMORPHONE HYDROCHLORIDE
  5. FLEET ENEMA MINERAL OIL [Concomitant]
  6. APO-ACETAMINOPHEN [Concomitant]
     Active Substance: ACETAMINOPHEN
  7. EURO-K20 [Concomitant]
  8. PENTASA [Concomitant]
     Active Substance: MESALAMINE
  9. APO-LORAZEPAM [Concomitant]
     Active Substance: LORAZEPAM
  10. BISACODYL. [Concomitant]
     Active Substance: BISACODYL
  11. LOVENOX [Concomitant]
     Active Substance: ENOXAPARIN SODIUM
     Dosage: UNK
     Dates: start: 20171001, end: 20171009
  12. ACETAMINOPHEN AND CODEINE [Concomitant]
     Active Substance: ACETAMINOPHEN\CODEINE PHOSPHATE
  13. JAMP K8 [Concomitant]
  14. VITAMIN B12 [Concomitant]
     Active Substance: CYANOCOBALAMIN
  15. HYDROMORPH CONTIN [Concomitant]
     Active Substance: HYDROMORPHONE
  16. JAMP VITAMIN B12 [Concomitant]
  17. RATIO-LENOLTEC NO 3 [Concomitant]
     Active Substance: ACETAMINOPHEN\CAFFEINE\CODEINE PHOSPHATE
     Dosage: T
  18. APO-ATORVASTATIN [Concomitant]
     Active Substance: ATORVASTATIN
  19. CHAMPIX [Concomitant]
     Active Substance: VARENICLINE TARTRATE
  20. PMS-ASA [Concomitant]
  21. CALCIUM CARBONATE. [Concomitant]
     Active Substance: CALCIUM CARBONATE
  22. METRONIDAZOLE. [Concomitant]
     Active Substance: METRONIDAZOLE
  23. APO-PANTOPRAZOLE [Concomitant]
     Active Substance: PANTOPRAZOLE SODIUM
  24. VITAMIN D3 [Concomitant]
     Active Substance: CHOLECALCIFEROL
  25. SUMATRIPTAN. [Concomitant]
     Active Substance: SUMATRIPTAN
  26. INFLECTRA [Suspect]
     Active Substance: INFLIXIMAB-DYYB
     Indication: CROHN^S DISEASE
     Dosage: 300 MG, CYCLIC (EVERY 0, 2,6 WEEKS, THEN EVERY 8WEEKS)
     Route: 042
     Dates: start: 20170814, end: 20170929
  27. PMS-CIPROFLOXACIN [Concomitant]

REACTIONS (3)
  - Gastrointestinal carcinoma [Unknown]
  - Nausea [Recovering/Resolving]
  - Vomiting [Not Recovered/Not Resolved]

NARRATIVE: CASE EVENT DATE: 201708
